FAERS Safety Report 6773035 (Version 3)
Quarter: 2014Q2

REPORT INFORMATION
  Report Type: Spontaneous
  Country: FI (occurrence: FI)
  Receive Date: 20080926
  Receipt Date: 20140404
  Transmission Date: 20141212
  Serious: Yes (Other)
  Sender: FDA-Public Use
  Company Number: FI-JNJFOC-20080903752

PATIENT
  Age: 12 Year
  Sex: Female

DRUGS (12)
  1. REMICADE [Suspect]
     Indication: INFLAMMATORY BOWEL DISEASE
     Route: 042
     Dates: start: 20080527
  2. REMICADE [Suspect]
     Indication: INFLAMMATORY BOWEL DISEASE
     Dosage: FOURTH INFLIXIMAB INFUSION
     Route: 042
     Dates: start: 20080828
  3. REMICADE [Suspect]
     Indication: JUVENILE IDIOPATHIC ARTHRITIS
     Route: 042
     Dates: start: 20080527
  4. REMICADE [Suspect]
     Indication: JUVENILE IDIOPATHIC ARTHRITIS
     Dosage: FOURTH INFLIXIMAB INFUSION
     Route: 042
     Dates: start: 20080828
  5. CORTISONE [Concomitant]
     Indication: COLITIS
     Dates: start: 2008
  6. CORTISONE [Concomitant]
     Indication: COLITIS
  7. PREDNISOLONE [Concomitant]
     Indication: INFLAMMATORY BOWEL DISEASE
     Route: 048
  8. SALAZOPYRIN [Concomitant]
     Indication: INFLAMMATORY BOWEL DISEASE
     Route: 048
  9. AZAMUN [Concomitant]
     Indication: INFLAMMATORY BOWEL DISEASE
     Route: 048
  10. SOMAC [Concomitant]
     Indication: GASTROINTESTINAL DISORDER THERAPY
     Route: 048
  11. CALCIUM [Concomitant]
     Route: 048
  12. PANADOL [Concomitant]
     Indication: PREMEDICATION
     Dates: start: 20080828

REACTIONS (5)
  - Anaphylactic reaction [Recovered/Resolved]
  - Infusion related reaction [Recovered/Resolved]
  - Drug ineffective [Unknown]
  - Arthropathy [Unknown]
  - Influenza [Recovered/Resolved]
